FAERS Safety Report 14263310 (Version 3)
Quarter: 2018Q2

REPORT INFORMATION
  Report Type: Spontaneous
  Country: IT (occurrence: IT)
  Receive Date: 20171208
  Receipt Date: 20180621
  Transmission Date: 20180711
  Serious: Yes (Life-Threatening, Hospitalization, Other)
  Sender: FDA-Public Use
  Company Number: IT-AUROBINDO-AUR-APL-2017-45056

PATIENT
  Age: 82 Year
  Sex: Female

DRUGS (14)
  1. LEVOFLOXACIN. [Interacting]
     Active Substance: LEVOFLOXACIN
     Indication: STAPHYLOCOCCAL SKIN INFECTION
     Dosage: MAINTENANCE DOSE
     Dates: start: 20150522
  2. RIFAMPICIN [Interacting]
     Active Substance: RIFAMPIN
     Dosage: 300 MILLIGRAM
     Route: 065
  3. VANCOMYCIN [Concomitant]
     Active Substance: VANCOMYCIN
     Dosage: MAINTENANCE DOSE; AT THE END OF DIALYSIS
     Route: 042
     Dates: start: 2015
  4. VANCOMYCIN [Concomitant]
     Active Substance: VANCOMYCIN
     Dosage: LOADING DOSE
     Route: 042
     Dates: start: 20150521, end: 20150521
  5. LEVOFLOXACIN. [Suspect]
     Active Substance: LEVOFLOXACIN
     Indication: STAPHYLOCOCCAL INFECTION
     Dosage: LOADING DOSE ; IN TOTAL
     Route: 048
     Dates: start: 20150521, end: 20150521
  6. RIFAMPICIN [Interacting]
     Active Substance: RIFAMPIN
     Indication: STAPHYLOCOCCAL INFECTION
     Dosage: 300 MILLIGRAM
     Route: 065
  7. FENTANYL. [Interacting]
     Active Substance: FENTANYL
     Indication: PROCEDURAL PAIN
     Dosage: 12 ?G, UNK
     Route: 062
     Dates: start: 20150521, end: 20150528
  8. VANCOMYCIN [Concomitant]
     Active Substance: VANCOMYCIN
     Dosage: BY A SWAB APPLIED TO A LEFT FOOT ULCER POSITIVE FOR STAPHYLOCOCCUS AUREUS
     Route: 061
  9. RIFAMPICIN [Interacting]
     Active Substance: RIFAMPIN
     Indication: STAPHYLOCOCCAL SKIN INFECTION
     Dosage: 300 MILLIGRAM
     Route: 042
     Dates: start: 20150521
  10. FENTANYL. [Interacting]
     Active Substance: FENTANYL
     Dosage: 200 ?G, TABLET
  11. FENTANYL. [Interacting]
     Active Substance: FENTANYL
     Dosage: 100 MICROGRAM
     Dates: start: 2015, end: 20150602
  12. VANCOMYCIN [Concomitant]
     Active Substance: VANCOMYCIN
     Indication: STAPHYLOCOCCAL INFECTION
     Dosage: 500 MILLIGRAM, CYCLICAL
     Route: 042
  13. FENTANYL. [Interacting]
     Active Substance: FENTANYL
     Indication: ISCHAEMIC LIMB PAIN
     Dosage: 25 ?G, UNK
     Route: 062
     Dates: start: 20150528, end: 20150602
  14. FENTANYL. [Interacting]
     Active Substance: FENTANYL
     Dosage: 100 ?G, TABLET

REACTIONS (14)
  - Hallucination [Recovered/Resolved]
  - Tremor [Recovered/Resolved]
  - Drug interaction [Unknown]
  - Sopor [Recovering/Resolving]
  - Therapy naive [Unknown]
  - Overdose [Unknown]
  - Somnolence [Recovered/Resolved]
  - Off label use [Unknown]
  - Status epilepticus [Recovered/Resolved]
  - Altered state of consciousness [Recovering/Resolving]
  - Toxicity to various agents [Unknown]
  - Miosis [Recovered/Resolved]
  - Depressed level of consciousness [Recovered/Resolved]
  - Drug ineffective [Unknown]

NARRATIVE: CASE EVENT DATE: 20150602
